FAERS Safety Report 4900101-5 (Version None)
Quarter: 2006Q1

REPORT INFORMATION
  Report Type: 
  Country: None (occurrence: None)
  Receive Date: 20060201
  Receipt Date: 20060124
  Transmission Date: 20060701
  Serious: Yes (Death, Hospitalization, Other)
  Sender: FDA-Public Use
  Company Number: US200601001579

PATIENT
  Age: 53 Year
  Sex: Female
  Weight: 122.4 kg

DRUGS (7)
  1. CYMBALTA [Suspect]
     Indication: DIABETIC NEUROPATHY
     Dosage: 30 MG, DAILY (1/D); ORAL
     Route: 048
     Dates: start: 20050601, end: 20050801
  2. COUMADIN [Concomitant]
  3. TIAZAC [Concomitant]
  4. LOPID [Concomitant]
  5. LANOXIN [Concomitant]
  6. LASIX  /SCH/(FUROSEMIDE, FOROSEMIDE SODIUM) [Concomitant]
  7. PRECOSE [Concomitant]

REACTIONS (3)
  - CRYPTOGENIC CIRRHOSIS [None]
  - HEPATIC ENCEPHALOPATHY [None]
  - HEPATIC FAILURE [None]
